FAERS Safety Report 4887853-8 (Version None)
Quarter: 2006Q1

REPORT INFORMATION
  Report Type: 
  Country: None (occurrence: None)
  Receive Date: 20060119
  Receipt Date: 20060106
  Transmission Date: 20060701
  Serious: Yes (Hospitalization, Other)
  Sender: FDA-Public Use
  Company Number: CIO05018067

PATIENT
  Age: 93 Year
  Sex: Female
  Weight: 61.2 kg

DRUGS (7)
  1. METAMUCIL SUGAR-FREE TEXTURE/FLAVOR UNKNOWN (PSYLLIUM HYDROPHILIC MUCI [Suspect]
     Indication: CONSTIPATION
     Dosage: SEE IMAGE, ORAL
     Route: 048
  2. NORVASC [Concomitant]
  3. ASPIRIN [Concomitant]
  4. ANACIN (CAFFEINE, ACETYLSALICYLIC ACID) [Concomitant]
  5. COCONUT OIL (COCOS NUCIFERA OIL) [Concomitant]
  6. FISH OIL (FISH OIL) [Concomitant]
  7. SENNA (SENNA ALEXANDRINA) [Concomitant]

REACTIONS (6)
  - ANGER [None]
  - ASTHENIA [None]
  - DEPRESSED MOOD [None]
  - GASTROINTESTINAL OBSTRUCTION [None]
  - MOBILITY DECREASED [None]
  - PROCTALGIA [None]
